FAERS Safety Report 7484192-6 (Version None)
Quarter: 2011Q2

REPORT INFORMATION
  Report Type: 
  Country: None (occurrence: None)
  Receive Date: 20110513
  Receipt Date: 20110513
  Transmission Date: 20111010
  Serious: Yes (Congenital Anomaly)
  Sender: FDA-Public Use
  Company Number: None

PATIENT
  Sex: Female

DRUGS (1)
  1. AZATHIOPRINE [Suspect]
     Indication: COLITIS ULCERATIVE
     Dosage: 200 MG DAILY PO
     Route: 048
     Dates: start: 20061119, end: 20110512

REACTIONS (7)
  - INABILITY TO CRAWL [None]
  - HIP DYSPLASIA [None]
  - DEVELOPMENTAL DELAY [None]
  - MATERNAL DRUGS AFFECTING FOETUS [None]
  - HYPOTONIA [None]
  - DYSSTASIA [None]
  - ABASIA [None]
